FAERS Safety Report 15767811 (Version 4)
Quarter: 2019Q4

REPORT INFORMATION
  Report Type: Report from Study
  Country: US (occurrence: US)
  Receive Date: 20181227
  Receipt Date: 20191209
  Transmission Date: 20200122
  Serious: Yes (Other)
  Sender: FDA-Public Use
  Company Number: PHEH2018US054170

PATIENT
  Sex: Female

DRUGS (2)
  1. GILENYA [Suspect]
     Active Substance: FINGOLIMOD HYDROCHLORIDE
     Dosage: 0.5 MG, QD
     Route: 048
     Dates: start: 20181204
  2. GILENYA [Suspect]
     Active Substance: FINGOLIMOD HYDROCHLORIDE
     Indication: MULTIPLE SCLEROSIS
     Dosage: UNK
     Route: 048

REACTIONS (7)
  - Cognitive disorder [Unknown]
  - Hypokinesia [Unknown]
  - Multiple sclerosis relapse [Unknown]
  - Rash [Unknown]
  - Feeling abnormal [Unknown]
  - Gait disturbance [Unknown]
  - Ligament sprain [Unknown]

NARRATIVE: CASE EVENT DATE: 2019
